FAERS Safety Report 14265223 (Version 2)
Quarter: 2018Q1

REPORT INFORMATION
  Report Type: Spontaneous
  Country: IL (occurrence: IL)
  Receive Date: 20171208
  Receipt Date: 20180125
  Transmission Date: 20180508
  Serious: Yes (Other)
  Sender: FDA-Public Use
  Company Number: IL-AMGEN-ISRSP2017181065

PATIENT
  Sex: Female

DRUGS (2)
  1. XGEVA [Suspect]
     Active Substance: DENOSUMAB
     Indication: METASTASES TO BONE
     Dosage: UNK
     Route: 058
     Dates: end: 2017
  2. XGEVA [Suspect]
     Active Substance: DENOSUMAB
     Indication: BREAST CANCER

REACTIONS (2)
  - Osteonecrosis of jaw [Unknown]
  - Hypercalcaemia of malignancy [Unknown]

NARRATIVE: CASE EVENT DATE: 2017
